FAERS Safety Report 4601926-6 (Version None)
Quarter: 2005Q1

REPORT INFORMATION
  Report Type: 
  Country: None (occurrence: None)
  Receive Date: 20050215
  Receipt Date: 20041216
  Transmission Date: 20050727
  Serious: Yes (Hospitalization)
  Sender: FDA-Public Use
  Company Number: 389788

PATIENT
  Sex: Female

DRUGS (1)
  1. PEGASYS [Suspect]
     Dosage: SUBCUTANEOUS
     Route: 058

REACTIONS (1)
  - HYPERSENSITIVITY [None]
